FAERS Safety Report 25123216 (Version 1)
Quarter: 2025Q1

REPORT INFORMATION
  Report Type: Spontaneous
  Country: US (occurrence: US)
  Receive Date: 20250326
  Receipt Date: 20250326
  Transmission Date: 20250409
  Serious: No
  Sender: GRIFOLS
  Company Number: US-IGSA-BIG0031762

PATIENT
  Sex: Female
  Weight: 70.295 kg

DRUGS (28)
  1. PROLASTIN-C LIQUID [Suspect]
     Active Substance: .ALPHA.1-PROTEINASE INHIBITOR HUMAN
     Indication: Alpha-1 antitrypsin deficiency
     Dosage: 8368 MILLIGRAM, Q.2WK.
     Route: 042
  2. MUCINEX [Concomitant]
     Active Substance: GUAIFENESIN
  3. BENADRYL [Concomitant]
     Active Substance: DIPHENHYDRAMINE HYDROCHLORIDE
  4. FLONASE ALLERGY RELIEF [Concomitant]
     Active Substance: FLUTICASONE PROPIONATE
     Route: 045
  5. EPINEPHRINE [Concomitant]
     Active Substance: EPINEPHRINE
  6. LIDOCAINE [Concomitant]
     Active Substance: LIDOCAINE
  7. SODIUM CHLORIDE [Concomitant]
     Active Substance: SODIUM CHLORIDE
  8. ZYRTEC [Concomitant]
     Active Substance: CETIRIZINE HYDROCHLORIDE
  9. ATORVASTATIN CALCIUM [Concomitant]
     Active Substance: ATORVASTATIN CALCIUM
  10. QUETIAPINE FUMARATE [Concomitant]
     Active Substance: QUETIAPINE FUMARATE
  11. FUROSEMIDE [Concomitant]
     Active Substance: FUROSEMIDE
  12. TROSPIUM CHLORIDE [Concomitant]
     Active Substance: TROSPIUM CHLORIDE
  13. MONTELUKAST SODIUM [Concomitant]
     Active Substance: MONTELUKAST SODIUM
  14. PROMETHAZINE HYDROCHLORIDE [Concomitant]
     Active Substance: PROMETHAZINE HYDROCHLORIDE
  15. DULOXETINE HYDROCHLORIDE [Concomitant]
     Active Substance: DULOXETINE HYDROCHLORIDE
  16. VITAMIN D2 [Concomitant]
     Active Substance: ERGOCALCIFEROL
  17. OMEPRAZOLE [Concomitant]
     Active Substance: OMEPRAZOLE
  18. MAGNESIUM [Concomitant]
     Active Substance: MAGNESIUM
  19. TRELEGY ELLIPTA [Concomitant]
     Active Substance: FLUTICASONE FUROATE\UMECLIDINIUM BROMIDE\VILANTEROL TRIFENATATE
  20. ALPRAZOLAM [Concomitant]
     Active Substance: ALPRAZOLAM
  21. GABAPENTIN [Concomitant]
     Active Substance: GABAPENTIN
  22. DONEPEZIL HYDROCHLORIDE [Concomitant]
     Active Substance: DONEPEZIL HYDROCHLORIDE
  23. ALBUTEROL\IPRATROPIUM [Concomitant]
     Active Substance: ALBUTEROL\IPRATROPIUM
  24. OXYBUTYNIN CHLORIDE [Concomitant]
     Active Substance: OXYBUTYNIN CHLORIDE
  25. TRAZODONE HCL [Concomitant]
     Active Substance: TRAZODONE HYDROCHLORIDE
  26. METHOCARBAMOL [Concomitant]
     Active Substance: METHOCARBAMOL
  27. DIAZEPAM [Concomitant]
     Active Substance: DIAZEPAM
  28. ALBUTEROL SULFATE [Concomitant]
     Active Substance: ALBUTEROL SULFATE

REACTIONS (1)
  - Fatigue [Not Recovered/Not Resolved]
